FAERS Safety Report 4448525-7 (Version None)
Quarter: 2004Q3

REPORT INFORMATION
  Report Type: 
  Country: None (occurrence: None)
  Receive Date: 20040729
  Receipt Date: 20031209
  Transmission Date: 20050211
  Serious: Yes (Death)
  Sender: FDA-Public Use
  Company Number: USA-2003-0011817

PATIENT
  Age: 34 Year
  Sex: Male
  Weight: 104.8 kg

DRUGS (4)
  1. MORPHINE SULFATE [Suspect]
  2. ETHANOL (ETHANOL) [Suspect]
  3. EPHEDRINE (EPHEDRINE) [Suspect]
  4. PSEUDOEPHEDRINE HCL [Suspect]

REACTIONS (1)
  - MULTIPLE DRUG OVERDOSE [None]
